FAERS Safety Report 23272241 (Version 1)
Quarter: 2023Q4

REPORT INFORMATION
  Report Type: Spontaneous
  Country: US (occurrence: None)
  Receive Date: 20231206
  Receipt Date: 20231206
  Transmission Date: 20240110
  Serious: Yes (Other)
  Sender: FDA-Public Use
  Company Number: None

PATIENT
  Age: 66 Year
  Sex: Female
  Weight: 58.05 kg

DRUGS (18)
  1. RESTASIS [Suspect]
     Active Substance: CYCLOSPORINE
     Indication: Meibomian gland dysfunction
     Dosage: FREQUENCY : TWICE A DAY;?
     Route: 047
     Dates: start: 20230810, end: 20231202
  2. BUPROPION [Concomitant]
     Active Substance: BUPROPION
  3. FLUVOXAMINE [Concomitant]
     Active Substance: FLUVOXAMINE
  4. FLUVOXAMINE [Concomitant]
     Active Substance: FLUVOXAMINE
  5. GABAPENTIN [Concomitant]
     Active Substance: GABAPENTIN
  6. Systane Hydration PF Soln [Concomitant]
  7. White Petrolatum-Mineral Oil (SYSTANE NIGHTTIME) OINT [Concomitant]
  8. Betamethasone dipropionate 0.05% external ointment [Concomitant]
  9. Olopatadine 0.1% Ophthalmic solution [Concomitant]
  10. Erythromycin with ethanol 2% gel [Concomitant]
  11. BENZONATATE [Concomitant]
     Active Substance: BENZONATATE
  12. Polyethylene glycol powder [Concomitant]
  13. THORNE (BRAND) Ferrous Bisglycinate Chelate [Concomitant]
  14. MELATONIN [Concomitant]
     Active Substance: MELATONIN
  15. Basic Nutrients by Thorne [Concomitant]
  16. CALCIUM [Concomitant]
     Active Substance: CALCIUM
  17. MAGNESIUM CITRATE [Concomitant]
  18. ZINC PICOLINATE [Concomitant]
     Active Substance: ZINC PICOLINATE

REACTIONS (8)
  - Pain [None]
  - Dizziness [None]
  - Headache [None]
  - Insomnia [None]
  - Eye pruritus [None]
  - Pruritus [None]
  - Rash [None]
  - Dysgeusia [None]

NARRATIVE: CASE EVENT DATE: 20231111
